FAERS Safety Report 5550701-7 (Version None)
Quarter: 2007Q4

REPORT INFORMATION
  Report Type: 
  Country: None (occurrence: None)
  Receive Date: 20071210
  Receipt Date: 20071126
  Transmission Date: 20080405
  Serious: Yes (Hospitalization)
  Sender: FDA-Public Use
  Company Number: 2007BI025660

PATIENT
  Age: 36 Year
  Sex: Female

DRUGS (7)
  1. AVONEX [Suspect]
     Indication: MULTIPLE SCLEROSIS
     Dosage: 1 QW; IM
     Route: 030
     Dates: start: 20070401, end: 20071116
  2. RETINOL [Concomitant]
  3. VITAMIN B [Concomitant]
  4. FERROUS SULFATE TAB [Concomitant]
  5. ASCORBIC ACID [Concomitant]
  6. COLECALCIFEROL [Concomitant]
  7. VITAMIN A ACETATE [Concomitant]

REACTIONS (5)
  - ANAEMIA [None]
  - HAEMORRHAGE [None]
  - OBESITY SURGERY [None]
  - PLEURAL EFFUSION [None]
  - PNEUMONIA [None]
